FAERS Safety Report 6258903-1 (Version None)
Quarter: 2009Q3

REPORT INFORMATION
  Report Type: 
  Country: None (occurrence: None)
  Receive Date: 20090702
  Receipt Date: 20090618
  Transmission Date: 20100115
  Serious: Yes (Other)
  Sender: FDA-Public Use
  Company Number: US-1170014

PATIENT
  Age: 78 Year
  Sex: Female
  Weight: 60.3284 kg

DRUGS (10)
  1. ISOPTO CARBACHOL 3 % OPHTHALMIC SOLUTION [Suspect]
     Indication: POSTOPERATIVE CARE
     Dosage: 1 GTT IMMEDIATELY POST-OP OPHTHALMIC
     Route: 047
     Dates: start: 20090603, end: 20090603
  2. FENTANYL [Concomitant]
  3. LIDOCAINE [Concomitant]
  4. PROPOFOL [Concomitant]
  5. VERSED [Concomitant]
  6. LIDOCAINE HYDROCHLORIDE [Concomitant]
  7. BSS [Concomitant]
  8. XYLOCAINE [Concomitant]
  9. EPINEPHRINE [Concomitant]
  10. DUOVISC [Concomitant]

REACTIONS (4)
  - BLOOD PRESSURE DECREASED [None]
  - HEART RATE DECREASED [None]
  - HYPERHIDROSIS [None]
  - NAUSEA [None]
